FAERS Safety Report 8300267-3 (Version None)
Quarter: 2012Q2

REPORT INFORMATION
  Report Type: 
  Country: None (occurrence: None)
  Receive Date: 20120420
  Receipt Date: 20120412
  Transmission Date: 20120825
  Serious: Yes (Hospitalization)
  Sender: FDA-Public Use
  Company Number: US-BAYER-2011-116810

PATIENT
  Age: 24 Year
  Sex: Female
  Weight: 59.637 kg

DRUGS (9)
  1. YAZ [Suspect]
     Dosage: UNK
     Dates: start: 20080501, end: 20080601
  2. YASMIN [Suspect]
     Dosage: UNK
     Dates: start: 20080601, end: 20080801
  3. BACTROBAN [Concomitant]
     Dosage: UNK
     Dates: start: 20081101
  4. YASMIN [Suspect]
     Indication: CONTRACEPTION
     Dosage: UNK
     Route: 048
     Dates: start: 20071001, end: 20080201
  5. GAS-X [Concomitant]
  6. ZANTAC [Concomitant]
  7. YAZ [Suspect]
     Indication: CONTRACEPTION
     Dosage: UNK
     Route: 048
     Dates: start: 20080201, end: 20080201
  8. YASMIN [Suspect]
     Dosage: UNK
     Dates: start: 20080301, end: 20080401
  9. DROSPIRENONE AND ETHINYL ESTRADIOL [Suspect]
     Dosage: UNK
     Dates: start: 20080801, end: 20090401

REACTIONS (6)
  - GENERAL PHYSICAL HEALTH DETERIORATION [None]
  - CHOLELITHIASIS [None]
  - ABDOMINAL PAIN [None]
  - EMOTIONAL DISTRESS [None]
  - CHOLECYSTITIS [None]
  - ANXIETY [None]
